FAERS Safety Report 8163651-7 (Version None)
Quarter: 2012Q1

REPORT INFORMATION
  Report Type: 
  Country: None (occurrence: None)
  Receive Date: 20120224
  Receipt Date: 20120224
  Transmission Date: 20120608
  Serious: Yes (Other)
  Sender: FDA-Public Use
  Company Number: US-AMGEN-USASP2011022337

PATIENT
  Age: 63 Year
  Sex: Female
  Weight: 75.74 kg

DRUGS (20)
  1. WELLBUTRIN [Concomitant]
     Dosage: 150 MG, QD
     Dates: start: 20110429
  2. ZOMETA [Concomitant]
     Indication: BREAST CANCER METASTATIC
     Dosage: 4 MG, QMO
     Route: 042
     Dates: start: 20100701, end: 20110301
  3. PRILOSEC [Concomitant]
     Dosage: 20 MG, QD
     Dates: start: 20110412
  4. SYNTHROID [Concomitant]
     Dosage: 50 MCI/MUG, QD
     Dates: start: 20110412
  5. VICODIN [Concomitant]
     Dosage: UNK, Q2H
     Dates: start: 20110429
  6. M.V.I. [Concomitant]
     Dosage: UNK UNK, QD
     Dates: start: 20110429
  7. VITAMIN D [Concomitant]
     Dosage: 1000 MG, QD
     Route: 042
     Dates: start: 20110429
  8. VITAMIN B-12 [Concomitant]
     Dosage: UNK UNK, QD
     Dates: start: 20110429
  9. FLAGYL [Concomitant]
     Dosage: 250 MG, QID
     Route: 048
     Dates: start: 20110811
  10. WELLBUTRIN [Concomitant]
     Dosage: 300 MG, QD
     Dates: start: 20110412
  11. CALCIUM [Concomitant]
     Dosage: 1000 MG, QD
     Dates: start: 20110429
  12. CYMBALTA [Concomitant]
     Dosage: 15 MG, QD
     Dates: start: 20110429
  13. VICODIN [Concomitant]
     Dosage: UNK UNK, PRN
     Dates: start: 20110505
  14. GABAPENTIN [Concomitant]
     Dosage: 300 MG, BID
  15. XGEVA [Suspect]
     Indication: METASTASES TO BONE
     Dosage: 120 MG, Q4WK
     Route: 030
     Dates: start: 20110412
  16. PRAVACHOL [Concomitant]
     Dosage: 20 MG, QD
     Dates: start: 20110412
  17. CLONOPIN [Concomitant]
     Dosage: 0.5 MG, QD
     Dates: start: 20110412
  18. VANCOMYCIN [Concomitant]
     Indication: OSTEONECROSIS
     Dosage: 3 G, Q6H
     Route: 042
     Dates: start: 20110712, end: 20110818
  19. FASLODEX [Concomitant]
     Indication: BREAST CANCER METASTATIC
     Dosage: 500 MG, QMO
     Route: 030
  20. NORCO [Concomitant]
     Dosage: 10 MG, QD
     Dates: start: 20110505

REACTIONS (5)
  - BONE PAIN [None]
  - INCORRECT ROUTE OF DRUG ADMINISTRATION [None]
  - PAIN IN JAW [None]
  - OSTEONECROSIS OF JAW [None]
  - TOOTHACHE [None]
